FAERS Safety Report 16862575 (Version 1)
Quarter: 2019Q3

REPORT INFORMATION
  Report Type: Spontaneous
  Country: JP (occurrence: JP)
  Receive Date: 20190927
  Receipt Date: 20190927
  Transmission Date: 20191005
  Serious: Yes (Hospitalization, Other)
  Sender: FDA-Public Use
  Company Number: JP-PFIZER INC-2019415292

PATIENT
  Age: 81 Year
  Sex: Male

DRUGS (13)
  1. FAMOTIDINE D EMEC [Concomitant]
     Dosage: 1 TABLET, 2X/DAY AFTER BRAEKFAST AND DINNER
  2. TAMSULOSIN HYDROCHLORIDE. [Concomitant]
     Active Substance: TAMSULOSIN HYDROCHLORIDE
     Dosage: 0.2 MG, 1X/DAY AFTER BREAKFAST
  3. DILAZEP HYDROCHLORIDE [Concomitant]
     Active Substance: DILAZEP DIHYDROCHLORIDE
     Dosage: 50 MG, 3X/DAY AFTER EACH MEAL
  4. NIFEDIPINE L [Concomitant]
     Active Substance: NIFEDIPINE
     Dosage: 10 MG, 2X/DAY AFTER BREAKFAST AND DINNER
  5. RIVOTRIL [Concomitant]
     Active Substance: CLONAZEPAM
     Dosage: 0.5 MG, 3X/DAY AFTER EACH MEAL
  6. MECOBALAMIN [Concomitant]
     Active Substance: METHYLCOBALAMIN
     Dosage: 0.5 MG, 3X/DAY AFTER EACH MEAL
  7. REBAMIPIDE [Concomitant]
     Active Substance: REBAMIPIDE
     Dosage: 100 MG, 3X/DAY AFTER EACH MEAL
  8. MAGNESIUM OXIDE. [Concomitant]
     Active Substance: MAGNESIUM OXIDE
     Indication: CONSTIPATION
     Dosage: 330 MG, AS NEEDED (PRN AT ONSET OF CONSTIPATION)
  9. PRAVASTATIN SODIUM. [Concomitant]
     Active Substance: PRAVASTATIN SODIUM
     Dosage: 0.5 TABLET, 1X/DAY HALF A TABLET AFTER BREAKFAST
  10. GASCON [Concomitant]
     Active Substance: DIMETHICONE
     Dosage: 40 MG, 3X/DAY AFTER EACH MEAL
  11. LYRICA [Suspect]
     Active Substance: PREGABALIN
     Dosage: 75 MG, 2X/DAY
  12. SENNOSIDE [SENNOSIDE A+B] [Concomitant]
     Active Substance: SENNOSIDES A AND B
     Indication: CONSTIPATION
     Dosage: 12 MG, AS NEEDED (PRN AT ONSET OF CONSTIPATION)
  13. ALOSENN [ACHILLEA MILLEFOLIUM;RUBIA TINCTORUM ROOT TINCTURE;SENNA ALEX [Concomitant]
     Active Substance: ACHILLEA MILLEFOLIUM\RUBIA TINCTURE\SENNA FRUIT EXTRACT\SENNA LEAF\TARAXACUM OFFICINALE
     Indication: CONSTIPATION
     Dosage: UNK, AS NEEDED (PRN AT ONSET OF CONSTIPATION)

REACTIONS (1)
  - Myelopathy [Not Recovered/Not Resolved]
